FAERS Safety Report 14973674 (Version 2)
Quarter: 2019Q3

REPORT INFORMATION
  Report Type: Report from Study
  Country: US (occurrence: US)
  Receive Date: 20180605
  Receipt Date: 20190718
  Transmission Date: 20191004
  Serious: Yes (Death, Hospitalization, Other)
  Sender: FDA-Public Use
  Company Number: US-BAYER-2018-105520

PATIENT

DRUGS (4)
  1. PIPERACILLIN. [Concomitant]
     Active Substance: PIPERACILLIN SODIUM
     Dosage: UNK
  2. TAZOBACTAM [Concomitant]
     Active Substance: TAZOBACTAM
     Dosage: UNK
  3. CIPROFLOXACIN. [Suspect]
     Active Substance: CIPROFLOXACIN
  4. AMIKACIN. [Concomitant]
     Active Substance: AMIKACIN
     Dosage: UNK

REACTIONS (2)
  - Pathogen resistance [None]
  - Serratia infection [Fatal]
